FAERS Safety Report 15929106 (Version 1)
Quarter: 2019Q1

REPORT INFORMATION
  Report Type: Spontaneous
  Country: US (occurrence: US)
  Receive Date: 20190206
  Receipt Date: 20190206
  Transmission Date: 20190417
  Serious: No
  Sender: FDA-Public Use
  Company Number: US-MISSION PHARMACAL COMPANY-2062228

PATIENT
  Age: 16 Year
  Sex: Female

DRUGS (1)
  1. THIOLA [Suspect]
     Active Substance: TIOPRONIN
     Indication: CYSTINURIA
     Route: 048
     Dates: start: 20190125

REACTIONS (12)
  - Pruritus [Unknown]
  - Pruritus genital [Unknown]
  - Lip dry [Unknown]
  - Rash [Unknown]
  - Lip swelling [Unknown]
  - Diarrhoea [Unknown]
  - Pyrexia [Unknown]
  - Genital discomfort [Unknown]
  - Photophobia [Unknown]
  - Eye swelling [Unknown]
  - Nausea [Unknown]
  - Throat irritation [Unknown]
